FAERS Safety Report 18864854 (Version 2)
Quarter: 2021Q1

REPORT INFORMATION
  Report Type: Report from Study
  Country: JP (occurrence: JP)
  Receive Date: 20210208
  Receipt Date: 20210305
  Transmission Date: 20210420
  Serious: Yes (Hospitalization)
  Sender: FDA-Public Use
  Company Number: JP-EISAI MEDICAL RESEARCH-EC-2021-087472

PATIENT
  Age: 60 Year
  Sex: Male
  Weight: 65 kg

DRUGS (10)
  1. NEXIUM [Concomitant]
     Active Substance: ESOMEPRAZOLE MAGNESIUM
     Indication: GASTRITIS
     Route: 048
     Dates: start: 201812
  2. LIPACREON [Concomitant]
     Active Substance: PANCRELIPASE
     Indication: PANCREATIC ENZYMES DECREASED
     Route: 048
  3. LENVATINIB [Suspect]
     Active Substance: LENVATINIB
     Indication: PANCREATIC CARCINOMA
     Route: 048
     Dates: start: 20201223, end: 20210130
  4. FERROUS SULFATE. [Concomitant]
     Active Substance: FERROUS SULFATE
     Indication: ANAEMIA
     Route: 048
  5. BEZATOL SR [Concomitant]
     Active Substance: BEZAFIBRATE
     Indication: HYPERLIPIDAEMIA
     Route: 048
     Dates: start: 201904
  6. BIO?THREE [Concomitant]
     Active Substance: HERBALS
     Indication: DYSBIOSIS
     Route: 048
     Dates: start: 201910
  7. CALONAL [Concomitant]
     Active Substance: ACETAMINOPHEN
     Indication: PYREXIA
     Route: 048
     Dates: start: 20201231
  8. E?7386. [Suspect]
     Active Substance: E-7386
     Indication: PANCREATIC CARCINOMA
     Route: 048
     Dates: start: 20201216, end: 20201221
  9. E?7386. [Suspect]
     Active Substance: E-7386
     Route: 048
     Dates: start: 20201223, end: 20210202
  10. URSO [Concomitant]
     Active Substance: URSODIOL
     Indication: HEPATIC STEATOSIS
     Route: 048

REACTIONS (1)
  - Hepatic infection [Recovering/Resolving]

NARRATIVE: CASE EVENT DATE: 20210202
